FAERS Safety Report 4438920-4 (Version None)
Quarter: 2004Q3

REPORT INFORMATION
  Report Type: 
  Country: None (occurrence: None)
  Receive Date: 20040901
  Receipt Date: 20040726
  Transmission Date: 20050211
  Serious: Yes (Other)
  Sender: FDA-Public Use
  Company Number: PHNU2004DE02681

PATIENT
  Age: 44 Year
  Sex: Male
  Weight: 111 kg

DRUGS (3)
  1. CLOZARIL [Suspect]
     Indication: SCHIZOPHRENIA, PARANOID TYPE
     Dosage: 400 MG/DAY
     Route: 048
     Dates: start: 20040205
  2. CLOZARIL [Suspect]
     Dosage: UP TO 600 MG/DAY
     Route: 048
     Dates: start: 19990101, end: 20040204
  3. HALDOL DECANOATE [Concomitant]
     Indication: SCHIZOPHRENIA, PARANOID TYPE
     Dosage: 1 ML, QMO
     Route: 030
     Dates: start: 20001122

REACTIONS (1)
  - PSORIASIS [None]
